FAERS Safety Report 18832070 (Version 9)
Quarter: 2021Q3

REPORT INFORMATION
  Report Type: Report from Study
  Country: SV (occurrence: SV)
  Receive Date: 20210203
  Receipt Date: 20210901
  Transmission Date: 20211014
  Serious: Yes (Other)
  Sender: FDA-Public Use
  Company Number: NVSC2021SV019814

PATIENT
  Sex: Female

DRUGS (4)
  1. CYCLOSPORINE. [Suspect]
     Active Substance: CYCLOSPORINE
     Indication: PSORIASIS
     Dosage: UNK
     Route: 065
     Dates: start: 201808, end: 20210124
  2. SECUKINUMAB. [Suspect]
     Active Substance: SECUKINUMAB
     Indication: PSORIATIC ARTHROPATHY
     Dosage: 1 DF, QMO
     Route: 065
     Dates: start: 20210125
  3. SECUKINUMAB. [Suspect]
     Active Substance: SECUKINUMAB
     Indication: PSORIASIS
     Dosage: 300 MG, QMO (BENEATH THE SKIN USUALLY VIA INJECTION)
     Route: 058
     Dates: start: 20210122
  4. ENALAPRIL [Suspect]
     Active Substance: ENALAPRIL
     Indication: HYPERTENSION
     Dosage: 0.5 DF, QD
     Route: 065

REACTIONS (22)
  - Feeling cold [Recovering/Resolving]
  - Skin lesion [Unknown]
  - Treatment failure [Not Recovered/Not Resolved]
  - Skin discolouration [Not Recovered/Not Resolved]
  - Diabetes mellitus [Unknown]
  - Body temperature increased [Recovered/Resolved]
  - Somnolence [Recovering/Resolving]
  - Hyperhidrosis [Unknown]
  - Skin plaque [Recovering/Resolving]
  - Condition aggravated [Unknown]
  - Decreased immune responsiveness [Unknown]
  - Pruritus [Recovered/Resolved]
  - Pain [Unknown]
  - Influenza [Recovered/Resolved]
  - Blood pressure increased [Recovering/Resolving]
  - Rash [Unknown]
  - Skin disorder [Recovering/Resolving]
  - Headache [Recovering/Resolving]
  - Nausea [Recovered/Resolved]
  - Dyspnoea [Recovering/Resolving]
  - Herpes zoster [Recovering/Resolving]
  - Hypotension [Recovering/Resolving]
